FAERS Safety Report 9403924 (Version 1)
Quarter: 2013Q3

REPORT INFORMATION
  Report Type: Spontaneous
  Country: GB (occurrence: GB)
  Receive Date: 20130717
  Receipt Date: 20130717
  Transmission Date: 20140515
  Serious: Yes (Hospitalization, Other)
  Sender: FDA-Public Use
  Company Number: GB-JNJFOC-20130707475

PATIENT
  Age: 83 Year
  Sex: Female

DRUGS (11)
  1. XARELTO [Suspect]
     Indication: ATRIAL FIBRILLATION
     Route: 048
     Dates: end: 20130526
  2. PARACETAMOL [Concomitant]
     Route: 065
  3. BRIMONIDINE [Concomitant]
     Route: 065
  4. BRINZOLAMIDE [Concomitant]
     Route: 065
  5. DESLORATADINE [Concomitant]
     Route: 065
  6. LEVOTHYROXINE [Concomitant]
     Route: 065
  7. RAMIPRIL [Concomitant]
     Route: 065
  8. RANITIDINE [Concomitant]
     Route: 065
  9. BISOPROLOL [Concomitant]
     Route: 065
  10. BENDROFLUMETHIAZIDE [Concomitant]
     Route: 065
  11. GANFORT [Concomitant]
     Route: 065

REACTIONS (5)
  - VIIth nerve paralysis [Unknown]
  - Headache [Unknown]
  - Convulsion [Unknown]
  - Cerebral haemorrhage [Unknown]
  - Haemorrhagic stroke [Unknown]
